FAERS Safety Report 19205293 (Version 1)
Quarter: 2021Q2

REPORT INFORMATION
  Report Type: Spontaneous
  Country: US (occurrence: US)
  Receive Date: 20210430
  Receipt Date: 20210430
  Transmission Date: 20210717
  Serious: Yes (Hospitalization)
  Sender: FDA-Public Use
  Company Number: None

PATIENT
  Age: 16 Month
  Sex: Male
  Weight: 12 kg

DRUGS (1)
  1. VENETOCLAX, 25MG TABS [Suspect]
     Active Substance: VENETOCLAX
     Indication: ACUTE MYELOID LEUKAEMIA
     Route: 048
     Dates: start: 20210316, end: 20210412

REACTIONS (3)
  - Bacteraemia [None]
  - Blood culture positive [None]
  - Bacterial infection [None]

NARRATIVE: CASE EVENT DATE: 20210428
